FAERS Safety Report 6242464-7 (Version None)
Quarter: 2009Q2

REPORT INFORMATION
  Report Type: 
  Country: None (occurrence: None)
  Receive Date: 20090622
  Receipt Date: 20090622
  Transmission Date: 20091009
  Serious: Yes (Other)
  Sender: FDA-Public Use
  Company Number: None

PATIENT
  Age: 51 Year
  Sex: Female
  Weight: 72.5755 kg

DRUGS (1)
  1. HUMIRA [Suspect]
     Indication: PSORIATIC ARTHROPATHY
     Dosage: 40 MG EVERY 2 WEEKS SQ
     Route: 058
     Dates: start: 20080101, end: 20090607

REACTIONS (3)
  - ACTINIC KERATOSIS [None]
  - MALIGNANT MELANOMA IN SITU [None]
  - PRURITUS [None]
